FAERS Safety Report 19856954 (Version 1)
Quarter: 2021Q3

REPORT INFORMATION
  Report Type: Spontaneous
  Country: GB (occurrence: GB)
  Receive Date: 20210920
  Receipt Date: 20210920
  Transmission Date: 20211014
  Serious: Yes (Life-Threatening, Other)
  Sender: FDA-Public Use
  Company Number: GB-MYLANLABS-2021M1062933

PATIENT
  Age: 71 Year
  Sex: Male

DRUGS (1)
  1. TERBINAFINE. [Suspect]
     Active Substance: TERBINAFINE
     Indication: FUNGAL SKIN INFECTION
     Dosage: 250 MILLIGRAM, QD
     Route: 048
     Dates: start: 20210908, end: 20210910

REACTIONS (2)
  - Loss of consciousness [Recovered/Resolved]
  - Syncope [Unknown]
